FAERS Safety Report 14026747 (Version 1)
Quarter: 2017Q3

REPORT INFORMATION
  Report Type: Spontaneous
  Country: CH (occurrence: CH)
  Receive Date: 20170929
  Receipt Date: 20170929
  Transmission Date: 20171128
  Serious: Yes (Hospitalization)
  Sender: FDA-Public Use
  Company Number: CH-NOVEN PHARMACEUTICALS, INC.-CH2017000945

PATIENT

DRUGS (7)
  1. ESTRADIOL/NORETHISTERONE ACETATE [Suspect]
     Active Substance: ESTRADIOL\NORETHINDRONE ACETATE
     Indication: MENOPAUSAL SYMPTOMS
     Dosage: 50 ?G, UNKNOWN
     Route: 062
     Dates: start: 20170623, end: 20170627
  2. CIMIFEMIN [Suspect]
     Active Substance: BLACK COHOSH
     Indication: MENOPAUSAL SYMPTOMS
     Dosage: UNK, UNKNOWN
     Route: 065
  3. FEMOSTON 2/10 [Suspect]
     Active Substance: DYDROGESTERONE\ESTRADIOL
     Indication: MENOPAUSAL SYMPTOMS
     Dosage: 1 ?G, QD
     Route: 048
     Dates: start: 20170524, end: 20170620
  4. FEMOSTON CONTI [Suspect]
     Active Substance: DYDROGESTERONE\ESTRADIOL
     Indication: MENOPAUSAL SYMPTOMS
     Dosage: 1 MG, QD
     Route: 048
     Dates: start: 20170508, end: 20170524
  5. DHEA [Suspect]
     Active Substance: PRASTERONE
     Indication: MENOPAUSAL SYMPTOMS
     Dosage: 25 MG, UNKNOWN
     Route: 048
     Dates: start: 20170703, end: 20170704
  6. DAFALGAN [Concomitant]
     Active Substance: ACETAMINOPHEN
     Dosage: UNK
  7. DIPROPHOS [Concomitant]
     Active Substance: BETAMETHASONE DIPROPIONATE\BETAMETHASONE SODIUM PHOSPHATE
     Dosage: UNK
     Dates: end: 20170629

REACTIONS (3)
  - Chest pain [Recovering/Resolving]
  - Acute myocardial infarction [Recovering/Resolving]
  - Dyspnoea [Recovered/Resolved]

NARRATIVE: CASE EVENT DATE: 201707
